FAERS Safety Report 13700767 (Version 1)
Quarter: 2017Q2

REPORT INFORMATION
  Report Type: Spontaneous
  Country: US (occurrence: US)
  Receive Date: 20170628
  Receipt Date: 20170628
  Transmission Date: 20170830
  Serious: No
  Sender: FDA-Public Use
  Company Number: None

PATIENT
  Age: 52 Year
  Sex: Female

DRUGS (1)
  1. ORENCIA [Suspect]
     Active Substance: ABATACEPT

REACTIONS (4)
  - Stomatitis [None]
  - Immunosuppression [None]
  - Lip discolouration [None]
  - Skin irritation [None]

NARRATIVE: CASE EVENT DATE: 20170626
